FAERS Safety Report 18802592 (Version 1)
Quarter: 2021Q1

REPORT INFORMATION
  Report Type: Spontaneous
  Country: US (occurrence: US)
  Receive Date: 20210128
  Receipt Date: 20210128
  Transmission Date: 20210419
  Serious: Yes (Death)
  Sender: FDA-Public Use
  Company Number: US-CELGENEUS-USA-20210106700

PATIENT
  Sex: Female

DRUGS (2)
  1. REVLIMID [Suspect]
     Active Substance: LENALIDOMIDE
     Indication: PLASMA CELL MYELOMA
     Dosage: 10 MILLIGRAM
     Route: 048
     Dates: start: 20200404
  2. REVLIMID [Suspect]
     Active Substance: LENALIDOMIDE
     Indication: OVARIAN CANCER
     Dosage: 10 MILLIGRAM
     Route: 048
     Dates: start: 201910

REACTIONS (1)
  - Death [Fatal]
